FAERS Safety Report 17204345 (Version 7)
Quarter: 2020Q1

REPORT INFORMATION
  Report Type: Report from Study
  Country: RU (occurrence: RU)
  Receive Date: 20191226
  Receipt Date: 20200312
  Transmission Date: 20200409
  Serious: Yes (Life-Threatening, Hospitalization)
  Sender: FDA-Public Use
  Company Number: RU-EISAI MEDICAL RESEARCH-EC-2019-067388

PATIENT
  Age: 78 Year
  Sex: Male
  Weight: 65.6 kg

DRUGS (14)
  1. LENVATINIB [Suspect]
     Active Substance: LENVATINIB
     Indication: HEPATOCELLULAR CARCINOMA
     Dosage: STARTING DOSE: 4 MILLIGRAM (FLUCTUATED DOSAGE TO 12 MILLIGRAM)
     Route: 048
     Dates: start: 20190619, end: 20191211
  2. AMLODIPINE [Concomitant]
     Active Substance: AMLODIPINE BESYLATE
     Dates: start: 20190710
  3. FUROSEMIDE. [Concomitant]
     Active Substance: FUROSEMIDE
     Dates: start: 20191113
  4. DIUVER [Concomitant]
     Active Substance: TORSEMIDE
     Dates: start: 20191119, end: 20191212
  5. OMEPRAZOLE. [Concomitant]
     Active Substance: OMEPRAZOLE
     Dates: start: 20191119, end: 20191212
  6. PLACEBO [Suspect]
     Active Substance: UNSPECIFIED INGREDIENT
     Indication: HEPATOCELLULAR CARCINOMA
     Route: 041
     Dates: start: 20190619, end: 20191113
  7. NOLPAZA [Concomitant]
     Active Substance: PANTOPRAZOLE SODIUM
     Dates: start: 20190506
  8. HEPTRAL [Concomitant]
     Active Substance: ADEMETIONINE
     Dates: start: 20190506
  9. GLUCOPHAGE [Concomitant]
     Active Substance: METFORMIN HYDROCHLORIDE
     Dates: start: 200801
  10. AMARYL [Concomitant]
     Active Substance: GLIMEPIRIDE
     Dates: start: 201501
  11. BISOPROLOL [Concomitant]
     Active Substance: BISOPROLOL
     Dates: start: 20191119, end: 20191212
  12. EZETIMIBE. [Concomitant]
     Active Substance: EZETIMIBE
     Dates: start: 20190712
  13. LENVATINIB [Suspect]
     Active Substance: LENVATINIB
     Dosage: 12 MILLIGRAM (BODY WEIGHT GREATER THAN OR EQUAL TO 60 KG)
     Route: 048
     Dates: start: 20191212, end: 20191212
  14. PLACEBO [Suspect]
     Active Substance: UNSPECIFIED INGREDIENT
     Route: 041
     Dates: start: 20191204, end: 20191204

REACTIONS (1)
  - Acute myocardial infarction [Recovered/Resolved]

NARRATIVE: CASE EVENT DATE: 20191213
